FAERS Safety Report 6430407-2 (Version None)
Quarter: 2009Q4

REPORT INFORMATION
  Report Type: 
  Country: None (occurrence: None)
  Receive Date: 20091106
  Receipt Date: 20091027
  Transmission Date: 20100525
  Serious: Yes (Hospitalization, Disabling)
  Sender: FDA-Public Use
  Company Number: NL-ELI_LILLY_AND_COMPANY-NL200910005529

PATIENT
  Sex: Female
  Weight: 59 kg

DRUGS (7)
  1. ALIMTA [Suspect]
     Indication: NON-SMALL CELL LUNG CANCER
     Dosage: 500 MG/M2, UNKNOWN
     Route: 065
  2. CISPLATIN [Concomitant]
     Dosage: UNK, UNKNOWN
     Route: 065
  3. OMEPRAZOLE [Concomitant]
     Dosage: 20 MG, UNKNOWN
     Route: 065
  4. DEXAMETHASONE [Concomitant]
     Dosage: 10 MG, UNKNOWN
     Route: 042
  5. TEMAZEPAM [Concomitant]
     Dosage: 20 MG, UNKNOWN
     Route: 065
  6. FOLIC ACID [Concomitant]
     Dosage: 0.5 MG, UNKNOWN
     Route: 065
  7. CYANOCOBALAMIN [Concomitant]
     Dosage: 100 UG, UNKNOWN
     Route: 030

REACTIONS (4)
  - APHASIA [None]
  - CEREBRAL INFARCTION [None]
  - HEMIANOPIA [None]
  - HEMIPARESIS [None]
